FAERS Safety Report 7345669-7 (Version None)
Quarter: 2011Q1

REPORT INFORMATION
  Report Type: 
  Country: None (occurrence: None)
  Receive Date: 20110310
  Receipt Date: 20110301
  Transmission Date: 20110831
  Serious: Yes (Disabling)
  Sender: FDA-Public Use
  Company Number: B0701499A

PATIENT
  Sex: Female
  Weight: 41 kg

DRUGS (5)
  1. TYKERB [Suspect]
     Indication: BREAST CANCER
     Dosage: 1250MG PER DAY
     Route: 048
     Dates: start: 20100703, end: 20101125
  2. XELODA [Suspect]
     Dosage: 120MG PER DAY
     Route: 048
     Dates: start: 20101127, end: 20101230
  3. XELODA [Suspect]
     Dosage: 2400MG PER DAY
     Route: 048
     Dates: start: 20100703, end: 20100723
  4. XELODA [Suspect]
     Dosage: 1800MG PER DAY
     Route: 048
     Dates: start: 20100724, end: 20100806
  5. TYKERB [Suspect]
     Dosage: 1000MG PER DAY
     Route: 048
     Dates: start: 20101127, end: 20110116

REACTIONS (1)
  - SKIN FISSURES [None]
